FAERS Safety Report 14710553 (Version 1)
Quarter: 2018Q2

REPORT INFORMATION
  Report Type: Spontaneous
  Country: US (occurrence: US)
  Receive Date: 20180403
  Receipt Date: 20180403
  Transmission Date: 20180711
  Serious: No
  Sender: FDA-Public Use
  Company Number: US-ROCHE-2044206

PATIENT
  Sex: Male

DRUGS (11)
  1. TOPROL XL [Concomitant]
     Active Substance: METOPROLOL SUCCINATE
  2. ASPIR 81 [Concomitant]
  3. FOLIC ACID. [Concomitant]
     Active Substance: FOLIC ACID
  4. MELOXICAM. [Concomitant]
     Active Substance: MELOXICAM
  5. CALTRATE [Concomitant]
     Active Substance: CALCIUM CARBONATE
  6. LOVAZA [Concomitant]
     Active Substance: OMEGA-3-ACID ETHYL ESTERS
  7. ACIDOPHILUS [Concomitant]
     Active Substance: LACTOBACILLUS ACIDOPHILUS
  8. DIOVAN [Concomitant]
     Active Substance: VALSARTAN
  9. CRANBERRY. [Concomitant]
     Active Substance: CRANBERRY
  10. DUTASTERIDE. [Concomitant]
     Active Substance: DUTASTERIDE
  11. ERIVEDGE [Suspect]
     Active Substance: VISMODEGIB
     Indication: SKIN CANCER
     Dosage: DAILY; ONGOING
     Route: 048
     Dates: start: 20171025

REACTIONS (3)
  - Dysgeusia [Unknown]
  - Muscle spasms [Unknown]
  - Alopecia [Unknown]
